FAERS Safety Report 9525288 (Version 2)
Quarter: 2013Q4

REPORT INFORMATION
  Report Type: Spontaneous
  Country: JP (occurrence: JP)
  Receive Date: 20130916
  Receipt Date: 20131009
  Transmission Date: 20140711
  Serious: Yes (Life-Threatening)
  Sender: FDA-Public Use
  Company Number: JP-ASTRAZENECA-2013SE68796

PATIENT
  Age: 36 Year
  Sex: Female
  Weight: 85 kg

DRUGS (2)
  1. MARCAIN [Suspect]
     Indication: SPINAL ANAESTHESIA
     Route: 029
     Dates: start: 201108, end: 201108
  2. FENTANYL [Concomitant]
     Indication: SPINAL ANAESTHESIA
     Dosage: 20 MG, 0.4 ML
     Route: 029

REACTIONS (2)
  - Cardiac arrest [Recovered/Resolved]
  - Bradycardia [Recovered/Resolved]
